FAERS Safety Report 7358693-5 (Version None)
Quarter: 2011Q1

REPORT INFORMATION
  Report Type: 
  Country: None (occurrence: None)
  Receive Date: 20110317
  Receipt Date: 20110310
  Transmission Date: 20110831
  Serious: Yes (Death, Hospitalization)
  Sender: FDA-Public Use
  Company Number: A0743993A

PATIENT
  Age: 49 Year
  Sex: Female
  Weight: 126.8 kg

DRUGS (1)
  1. AVANDIA [Suspect]
     Indication: DIABETES MELLITUS
     Route: 048

REACTIONS (26)
  - ATRIAL FIBRILLATION [None]
  - ANXIETY [None]
  - ARTERIOSCLEROSIS CORONARY ARTERY [None]
  - TACHYCARDIA [None]
  - HYPERLIPIDAEMIA [None]
  - CORONARY ARTERY DISEASE [None]
  - CAROTID ARTERY OCCLUSION [None]
  - AORTIC VALVE SCLEROSIS [None]
  - PAIN [None]
  - CARDIAC FAILURE CONGESTIVE [None]
  - VENTRICULAR TACHYCARDIA [None]
  - MITRAL VALVE CALCIFICATION [None]
  - IRON DEFICIENCY [None]
  - BRADYCARDIA [None]
  - EMBOLISM ARTERIAL [None]
  - TRICUSPID VALVE INCOMPETENCE [None]
  - METABOLIC ACIDOSIS [None]
  - MITRAL VALVE DISEASE [None]
  - ANAEMIA [None]
  - SLEEP APNOEA SYNDROME [None]
  - HYPERTENSION [None]
  - DEATH [None]
  - PERIPHERAL VASCULAR DISORDER [None]
  - ARTERIOSCLEROSIS [None]
  - CAROTID ARTERY STENOSIS [None]
  - VITAMIN D DEFICIENCY [None]
